FAERS Safety Report 9606415 (Version 2)
Quarter: 2013Q4

REPORT INFORMATION
  Report Type: Spontaneous
  Country: US (occurrence: US)
  Receive Date: 20131008
  Receipt Date: 20131008
  Transmission Date: 20140711
  Serious: No
  Sender: FDA-Public Use
  Company Number: US-AMGEN-USASP2013051579

PATIENT
  Age: 61 Year
  Sex: Female

DRUGS (10)
  1. PROLIA [Suspect]
     Indication: OSTEOPOROSIS
     Dosage: 60 MG, UNK
     Route: 058
     Dates: start: 2011
  2. PREVACID [Concomitant]
  3. PEPCID                             /00706001/ [Concomitant]
  4. SYNTHROID [Concomitant]
  5. CYTOMEL [Concomitant]
  6. D3 [Concomitant]
  7. BABY ASPIRIN [Concomitant]
  8. MULTIVITAMIN                       /00097801/ [Concomitant]
  9. CALCIUM [Concomitant]
  10. FISH OIL [Concomitant]

REACTIONS (6)
  - Emotional disorder [Recovered/Resolved]
  - Feeling abnormal [Recovered/Resolved]
  - Bone disorder [Recovered/Resolved]
  - Malaise [Unknown]
  - Injection site pain [Unknown]
  - Vascular rupture [Recovered/Resolved]
